FAERS Safety Report 23491784 (Version 2)
Quarter: 2024Q1

REPORT INFORMATION
  Report Type: Spontaneous
  Country: US (occurrence: US)
  Receive Date: 20240207
  Receipt Date: 20240227
  Transmission Date: 20240410
  Serious: No
  Sender: FDA-Public Use
  Company Number: US-ORG100014127-2023000590

PATIENT
  Age: 28 Year
  Sex: Female

DRUGS (6)
  1. MITOTANE [Suspect]
     Active Substance: MITOTANE
     Indication: Adrenocortical carcinoma
     Dosage: TITRATED FROM 1500 MG PER DAY
     Route: 048
  2. METYRAPONE [Suspect]
     Active Substance: METYRAPONE
     Indication: Cushing^s syndrome
     Dosage: 250 MG THREE TIMES A DAY
     Route: 048
  3. METYRAPONE [Suspect]
     Active Substance: METYRAPONE
     Indication: Cushing^s syndrome
     Dosage: Q6H
     Route: 048
  4. Dexamethasone 2 mg [Concomitant]
     Indication: Blood corticotrophin increased
     Dosage: 2 MG TWICE A DAY
  5. Dexamethasone 2 mg [Concomitant]
     Indication: Blood corticotrophin increased
     Dosage: 12 MG DAILY
  6. SPIRONOLACTONE [Concomitant]
     Active Substance: SPIRONOLACTONE
     Indication: Adrenal androgen excess
     Dosage: 50 MG DAILY

REACTIONS (2)
  - Gastrointestinal disorder [Unknown]
  - Off label use [Unknown]
